FAERS Safety Report 16568759 (Version 1)
Quarter: 2019Q3

REPORT INFORMATION
  Report Type: Spontaneous
  Country: DE (occurrence: DE)
  Receive Date: 20190713
  Receipt Date: 20190713
  Transmission Date: 20191004
  Serious: Yes (Other)
  Sender: FDA-Public Use
  Company Number: DE-TEVA-2019-DE-1076654

PATIENT
  Age: 58 Year
  Sex: Male
  Weight: 118 kg

DRUGS (3)
  1. SIMVASTATIN. [Concomitant]
     Active Substance: SIMVASTATIN
     Dosage: 20 MG, 0-0-1-0
  2. HYDROCHLOROTHIAZIDE/RAMIPRIL [Suspect]
     Active Substance: HYDROCHLOROTHIAZIDE\RAMIPRIL
     Dosage: 5|25 MG, 1-0-1-0
     Route: 065
  3. EBRANTIL 60MG [Suspect]
     Active Substance: URAPIDIL
     Dosage: 60 MG, 1-0-1-0
     Route: 065

REACTIONS (2)
  - Extra dose administered [Recovered/Resolved]
  - Circulatory collapse [Recovered/Resolved]

NARRATIVE: CASE EVENT DATE: 20180130
